FAERS Safety Report 6111414-6 (Version None)
Quarter: 2009Q1

REPORT INFORMATION
  Report Type: 
  Country: None (occurrence: None)
  Receive Date: 20090309
  Receipt Date: 20090302
  Transmission Date: 20090719
  Serious: Yes (Death)
  Sender: FDA-Public Use
  Company Number: A-CH2009-23748

PATIENT
  Age: 70 Year
  Sex: Female

DRUGS (1)
  1. TRACLEER [Suspect]
     Indication: DRUG USE FOR UNKNOWN INDICATION
     Dosage: ORAL
     Route: 048

REACTIONS (4)
  - CARDIAC FAILURE [None]
  - CONDITION AGGRAVATED [None]
  - INFECTION [None]
  - LUNG DISORDER [None]
